FAERS Safety Report 9112259 (Version 1)
Quarter: 2013Q1

REPORT INFORMATION
  Report Type: Spontaneous
  Country: US (occurrence: US)
  Receive Date: 20130219
  Receipt Date: 20130219
  Transmission Date: 20140127
  Serious: No
  Sender: FDA-Public Use
  Company Number: US-BRISTOL-MYERS SQUIBB COMPANY-16989121

PATIENT
  Age: 64 Year
  Sex: Female
  Weight: 46.71 kg

DRUGS (2)
  1. ORENCIA [Suspect]
     Indication: RHEUMATOID ARTHRITIS
     Dosage: LAST INF: 20SEP12,19OCT12?EVERY 2 WK UNTIL AFTER 1ST MONTH, THEN MONTHLY
     Route: 042
     Dates: start: 20120920
  2. METHOTREXATE [Suspect]

REACTIONS (10)
  - Fatigue [Unknown]
  - Weight decreased [Unknown]
  - Herpes virus infection [Unknown]
  - Dysgeusia [Unknown]
  - Pain of skin [Unknown]
  - Dry skin [Unknown]
  - Alopecia [Unknown]
  - Headache [Unknown]
  - Cough [Unknown]
  - Dyspnoea [Unknown]
